FAERS Safety Report 5918916-3 (Version None)
Quarter: 2008Q4

REPORT INFORMATION
  Report Type: 
  Country: None (occurrence: None)
  Receive Date: 20081015
  Receipt Date: 20081004
  Transmission Date: 20090506
  Serious: Yes (Hospitalization, Other)
  Sender: FDA-Public Use
  Company Number: PL-AMGEN-UK310726

PATIENT
  Sex: Female
  Weight: 59 kg

DRUGS (8)
  1. MIMPARA [Suspect]
     Indication: HYPERPARATHYROIDISM SECONDARY
     Dates: start: 20080521, end: 20080928
  2. CLEXANE [Suspect]
     Route: 058
     Dates: start: 20080129, end: 20080909
  3. HEPARIN [Suspect]
     Route: 042
     Dates: start: 20071020, end: 20080925
  4. BISOPROLOL FUMARATE [Concomitant]
     Route: 048
  5. AMLODIPINE [Concomitant]
     Route: 048
  6. SOLUPRED [Concomitant]
     Route: 048
     Dates: start: 20071020
  7. CALCIUM CARBONATE [Concomitant]
     Route: 048
     Dates: start: 20080601
  8. ALLOPURINOL [Concomitant]
     Route: 048
     Dates: start: 20080101

REACTIONS (3)
  - HAEMATURIA [None]
  - HAEMORRHAGIC DIATHESIS [None]
  - THROMBOCYTOPENIA [None]
